FAERS Safety Report 15894005 (Version 3)
Quarter: 2019Q1

REPORT INFORMATION
  Report Type: Spontaneous
  Country: BR (occurrence: BR)
  Receive Date: 20190131
  Receipt Date: 20190222
  Transmission Date: 20190417
  Serious: Yes (Hospitalization)
  Sender: FDA-Public Use
  Company Number: BR-SAKK-2019SA010163AA

PATIENT
  Sex: Female
  Weight: 80 kg

DRUGS (8)
  1. METFORMIN [Concomitant]
     Active Substance: METFORMIN HYDROCHLORIDE
     Indication: DIABETES MELLITUS
     Dosage: UNK UNK, BID
     Route: 048
  2. OSTEOTIME XR [Concomitant]
     Indication: OSTEOPOROSIS
     Dosage: UNK UNK, UNK
     Route: 048
  3. GLIMEPIRIDE. [Concomitant]
     Active Substance: GLIMEPIRIDE
     Dosage: UNK UNK, UNK
     Route: 048
  4. VERTIGOHEEL [ANAMIRTA COCCULUS;CONIUM MACULATUM;HOMEOPATHICS NOS] [Concomitant]
     Dosage: UNK UNK, UNK
     Route: 048
  5. DOMPERIDONE [Concomitant]
     Active Substance: DOMPERIDONE
     Dosage: UNK UNK, UNK
     Route: 048
  6. DIOVAN [Concomitant]
     Active Substance: VALSARTAN
     Dosage: UNK UNK, BID
     Route: 048
  7. LANTUS [Suspect]
     Active Substance: INSULIN GLARGINE
     Indication: TYPE 2 DIABETES MELLITUS
     Dosage: 30 UI IN THE MORNING AND 36 UI AT NIGHT
     Route: 058
  8. ATENOLOL. [Concomitant]
     Active Substance: ATENOLOL
     Dosage: UNK UNK, UNK
     Route: 048

REACTIONS (10)
  - Multiple use of single-use product [Unknown]
  - Feeding disorder [Recovered/Resolved]
  - Blood glucose fluctuation [Recovering/Resolving]
  - Inappropriate schedule of product administration [Unknown]
  - Asthenia [Recovered/Resolved]
  - Fall [Unknown]
  - Injection site pain [Unknown]
  - Gait disturbance [Recovered/Resolved]
  - Blood glucose increased [Unknown]
  - Incorrect dose administered [Unknown]
